FAERS Safety Report 4278291-X (Version None)
Quarter: 2004Q1

REPORT INFORMATION
  Report Type: 
  Country: None (occurrence: None)
  Receive Date: 20040121
  Receipt Date: 20030912
  Transmission Date: 20041129
  Serious: Yes (Hospitalization, Other)
  Sender: FDA-Public Use
  Company Number: EWC030635321

PATIENT
  Age: 80 Year
  Sex: Male

DRUGS (3)
  1. PERGOLIDE MESYLATE [Suspect]
     Indication: PARKINSON'S DISEASE
     Dosage: 3 MG/DAY
  2. PROLOPA [Concomitant]
  3. COMTAN [Concomitant]

REACTIONS (4)
  - AORTIC ATHEROSCLEROSIS [None]
  - AORTIC VALVE SCLEROSIS [None]
  - HIP FRACTURE [None]
  - MITRAL VALVE DISEASE [None]
